FAERS Safety Report 5074621-X (Version None)
Quarter: 2006Q3

REPORT INFORMATION
  Report Type: 
  Country: None (occurrence: None)
  Receive Date: 20060808
  Receipt Date: 20050826
  Transmission Date: 20061208
  Serious: No
  Sender: FDA-Public Use
  Company Number: US-AMGEN-US148128

PATIENT
  Age: 53 Year
  Sex: Female

DRUGS (5)
  1. EPOGEN [Suspect]
     Indication: ANAEMIA
     Route: 058
     Dates: start: 20050801, end: 20050823
  2. FERROUS SULFATE TAB [Concomitant]
  3. METAMUCIL [Concomitant]
  4. TOPAMAX [Concomitant]
  5. ATIVAN [Concomitant]

REACTIONS (6)
  - ASTHENIA [None]
  - CHILLS [None]
  - MALAISE [None]
  - PRURITUS [None]
  - RASH [None]
  - WHEEZING [None]
